FAERS Safety Report 18431759 (Version 1)
Quarter: 2020Q4

REPORT INFORMATION
  Report Type: Spontaneous
  Country: CA (occurrence: CA)
  Receive Date: 20201027
  Receipt Date: 20201027
  Transmission Date: 20210114
  Serious: Yes (Other)
  Sender: FDA-Public Use
  Company Number: CA-PFIZER INC-2020412837

PATIENT
  Age: 50 Year
  Sex: Male

DRUGS (1)
  1. EUCRISA [Suspect]
     Active Substance: CRISABOROLE
     Indication: PERIORAL DERMATITIS
     Dosage: UNK
     Route: 061

REACTIONS (6)
  - Periorbital inflammation [Not Recovered/Not Resolved]
  - Periorbital discomfort [Not Recovered/Not Resolved]
  - Rosacea [Not Recovered/Not Resolved]
  - Product use in unapproved indication [Unknown]
  - Off label use [Unknown]
  - Pruritus [Not Recovered/Not Resolved]
